FAERS Safety Report 13997052 (Version 1)
Quarter: 2017Q3

REPORT INFORMATION
  Report Type: Spontaneous
  Country: JP (occurrence: JP)
  Receive Date: 20170921
  Receipt Date: 20170921
  Transmission Date: 20171128
  Serious: Yes (Death, Hospitalization, Other)
  Sender: FDA-Public Use
  Company Number: JP-BAYER-2017-162264

PATIENT
  Age: 54 Year
  Sex: Male
  Weight: 78.8 kg

DRUGS (3)
  1. BAYASPIRIN 100 MG [Suspect]
     Active Substance: ASPIRIN
     Indication: CORONARY ARTERY STENOSIS
     Dosage: 100 MG, QD
     Route: 048
     Dates: start: 20170506, end: 20170630
  2. CRESTOR [Suspect]
     Active Substance: ROSUVASTATIN CALCIUM
     Dosage: 2.5 MG, QD
     Route: 048
     Dates: start: 20170506, end: 20170630
  3. TEGRETOL [Suspect]
     Active Substance: CARBAMAZEPINE
     Dosage: UNK
     Dates: start: 20170612, end: 20170715

REACTIONS (5)
  - Sepsis [None]
  - Death [Fatal]
  - Drug interaction [None]
  - Drug reaction with eosinophilia and systemic symptoms [Fatal]
  - Ileus [None]

NARRATIVE: CASE EVENT DATE: 20170715
